FAERS Safety Report 9597436 (Version 1)
Quarter: 2013Q4

REPORT INFORMATION
  Report Type: Spontaneous
  Country: US (occurrence: US)
  Receive Date: 20131004
  Receipt Date: 20131004
  Transmission Date: 20140711
  Serious: No
  Sender: FDA-Public Use
  Company Number: US-AMGEN-USASP2013019192

PATIENT
  Age: 61 Year
  Sex: Male
  Weight: 86.17 kg

DRUGS (5)
  1. ENBREL [Suspect]
     Indication: RHEUMATOID ARTHRITIS
     Dosage: 50 MG, QWK
     Route: 058
  2. PREDNISONE [Concomitant]
     Dosage: 10 MG, UNK
  3. FOLIC ACID [Concomitant]
     Dosage: UNK
  4. MELOXICAM [Concomitant]
     Dosage: 7.5 MG, UNK
  5. HYDROCODONE/APAP [Concomitant]
     Dosage: 5-500 MG UNK, UNK

REACTIONS (2)
  - Streptococcal infection [Unknown]
  - Hypertension [Unknown]
